FAERS Safety Report 9571863 (Version 6)
Quarter: 2014Q2

REPORT INFORMATION
  Report Type: Report from Study
  Country: US (occurrence: US)
  Receive Date: 20131001
  Receipt Date: 20140417
  Transmission Date: 20141212
  Serious: Yes (Other)
  Sender: FDA-Public Use
  Company Number: US-ROCHE-1266836

PATIENT
  Sex: Female

DRUGS (12)
  1. AVASTIN [Suspect]
     Indication: DIABETIC RETINAL OEDEMA
     Dosage: X4
     Route: 050
     Dates: end: 20121130
  2. AVASTIN [Suspect]
     Indication: DIABETIC RETINAL OEDEMA
  3. AVASTIN [Suspect]
     Indication: DIABETIC RETINAL OEDEMA
  4. AVASTIN [Suspect]
     Indication: DIABETIC RETINOPATHY
  5. LUCENTIS [Suspect]
     Indication: DIABETIC RETINOPATHY
     Dosage: PER 0.5 ML OU
     Route: 050
  6. LUCENTIS [Suspect]
     Indication: DIABETIC RETINAL OEDEMA
     Dosage: PER 0.5 ML OU
     Route: 050
     Dates: start: 20131209
  7. GLIPIZIDE [Concomitant]
  8. METFORMIN HYDROCHLORIDE [Concomitant]
  9. ZOCOR [Concomitant]
  10. LISINOPRIL [Concomitant]
  11. ZOLOFT [Concomitant]
  12. ASPIRIN [Concomitant]
     Route: 065

REACTIONS (6)
  - Macular oedema [Recovering/Resolving]
  - Visual acuity reduced [Not Recovered/Not Resolved]
  - Vitreous floaters [Recovered/Resolved]
  - Photopsia [Not Recovered/Not Resolved]
  - Vision blurred [Not Recovered/Not Resolved]
  - Eye pain [Recovered/Resolved]
